FAERS Safety Report 21789886 (Version 1)
Quarter: 2022Q4

REPORT INFORMATION
  Report Type: Spontaneous
  Country: IN (occurrence: IN)
  Receive Date: 20221228
  Receipt Date: 20221228
  Transmission Date: 20230112
  Serious: Yes (Other)
  Sender: FDA-Public Use
  Company Number: IN-PFIZER INC-202200751525

PATIENT
  Age: 50 Year
  Sex: Female
  Weight: 69.5 kg

DRUGS (3)
  1. PALBOCICLIB [Suspect]
     Active Substance: PALBOCICLIB
     Dosage: 125 MG, 1X/DAY
     Route: 048
     Dates: start: 20220409
  2. PALBOCICLIB [Suspect]
     Active Substance: PALBOCICLIB
     Dosage: 125 MG, 1X/DAY
     Route: 048
     Dates: start: 20220414
  3. ZOLEDRONIC ACID [Concomitant]
     Active Substance: ZOLEDRONIC ACID
     Dosage: 4 MG
     Route: 042
     Dates: start: 20220511

REACTIONS (7)
  - Platelet count decreased [Unknown]
  - Cholecystitis chronic [Unknown]
  - Blood uric acid increased [Unknown]
  - C-reactive protein increased [Unknown]
  - Haemoglobin decreased [Unknown]
  - Mean cell volume increased [Unknown]
  - Mean cell haemoglobin concentration decreased [Unknown]

NARRATIVE: CASE EVENT DATE: 20220511
